FAERS Safety Report 5166641-1 (Version None)
Quarter: 2006Q4

REPORT INFORMATION
  Report Type: 
  Country: None (occurrence: None)
  Receive Date: 20061207
  Receipt Date: 20060209
  Transmission Date: 20070319
  Serious: Yes (Life-Threatening, Hospitalization, Other)
  Sender: FDA-Public Use
  Company Number: DE-ABBOTT-06P-062-0324591-00

PATIENT
  Sex: Female
  Weight: 69 kg

DRUGS (2)
  1. HUMIRA [Suspect]
     Indication: RHEUMATOID ARTHRITIS
     Route: 058
     Dates: start: 20050901, end: 20051001
  2. HUMIRA [Suspect]
     Dates: start: 20041001, end: 20050201

REACTIONS (3)
  - BREAST CANCER [None]
  - BREAST CANCER METASTATIC [None]
  - METASTASES TO BONE [None]
